FAERS Safety Report 25936088 (Version 1)
Quarter: 2025Q4

REPORT INFORMATION
  Report Type: Spontaneous
  Country: US (occurrence: US)
  Receive Date: 20251017
  Receipt Date: 20251017
  Transmission Date: 20260117
  Serious: No
  Sender: FRESENIUS KABI
  Company Number: US-FreseniusKabi-FK202513852

PATIENT
  Age: 7 Month
  Sex: Male

DRUGS (2)
  1. SMOFLIPID [Suspect]
     Active Substance: FISH OIL\MEDIUM-CHAIN TRIGLYCERIDES\OLIVE OIL\SOYBEAN OIL
     Indication: Feeding intolerance
     Dosage: TPN DEPENDENT SINCE 31ST MAY ?APPROX 46 KCAL/KG (ESTIMATED ENERGY NEEDS) REDUCED TO SMOF @ 1 G/KG
  2. SMOFLIPID [Suspect]
     Active Substance: FISH OIL\MEDIUM-CHAIN TRIGLYCERIDES\OLIVE OIL\SOYBEAN OIL
     Indication: Parenteral nutrition

REACTIONS (2)
  - Hypertriglyceridaemia [Unknown]
  - Condition aggravated [Unknown]
